FAERS Safety Report 8032407-8 (Version None)
Quarter: 2012Q1

REPORT INFORMATION
  Report Type: 
  Country: None (occurrence: None)
  Receive Date: 20120109
  Receipt Date: 20120109
  Transmission Date: 20120608
  Serious: Yes (Other)
  Sender: FDA-Public Use
  Company Number: None

PATIENT
  Age: 49 Year
  Sex: Female
  Weight: 60.0562 kg

DRUGS (2)
  1. ALPRAZOLAM [Suspect]
     Indication: ANXIETY
     Dosage: 2 MG 1 TAB PRIOR TO PROCEDURE
     Dates: start: 20100611
  2. ALPRAZOLAM [Suspect]
     Indication: ANXIETY
     Dosage: 2 MG 1 TAB PRIOR TO PROCEDURE
     Dates: start: 20100527

REACTIONS (2)
  - RASH [None]
  - URTICARIA [None]
